FAERS Safety Report 9049846 (Version 2)
Quarter: 2013Q2

REPORT INFORMATION
  Report Type: Spontaneous
  Country: DE (occurrence: DE)
  Receive Date: 20130205
  Receipt Date: 20130530
  Transmission Date: 20140414
  Serious: Yes (Life-Threatening, Hospitalization, Other)
  Sender: FDA-Public Use
  Company Number: DE-AMGEN-DEUSP2013007709

PATIENT
  Age: 57 Year
  Sex: Female
  Weight: 69 kg

DRUGS (2)
  1. ENBREL [Suspect]
     Indication: ANKYLOSING SPONDYLITIS
     Dosage: 50 MG, WEEKLY
     Route: 058
     Dates: start: 20110418, end: 201210
  2. HUMIRA [Concomitant]
     Indication: ANKYLOSING SPONDYLITIS
     Dosage: 40 MG, 2 TIMES/WK
     Route: 058
     Dates: start: 201009, end: 201104

REACTIONS (1)
  - Breast cancer [Not Recovered/Not Resolved]
